FAERS Safety Report 10373826 (Version 1)
Quarter: 2014Q1

REPORT INFORMATION
  Report Type: Spontaneous
  Country: US (occurrence: None)
  Receive Date: 20140306
  Receipt Date: 20140306
  Transmission Date: 20141002
  Serious: Yes (Disabling)
  Sender: FDA-Public Use
  Company Number: 163-21880-13094367

PATIENT
  Age: 58 Year
  Sex: Female
  Weight: 84.82 kg

DRUGS (5)
  1. REVLIMID (LENALIDOMIDE) (25 MILLIGRAM, CAPSULES) [Suspect]
     Indication: PLASMA CELL MYELOMA
     Route: 048
     Dates: start: 20100608
  2. DEXAMETHASONE [Concomitant]
  3. ACYCLOVIR (ACICLOVIR) (CAPSULES) [Concomitant]
  4. PRILOSEC (OMEPRAZOLE) (CAPSULES) [Concomitant]
  5. TYLENOL PM EXTRA STRENGTH (DOZOL) [Concomitant]

REACTIONS (2)
  - Drug ineffective [None]
  - Plasma cell myeloma [None]
